FAERS Safety Report 20068238 (Version 2)
Quarter: 2021Q4

REPORT INFORMATION
  Report Type: Other
  Country: TR (occurrence: None)
  Receive Date: 20211115
  Receipt Date: 20211118
  Transmission Date: 20220303
  Serious: Yes (Death, Other)
  Sender: FDA-Public Use
  Company Number: TR-ROCHE-2955737

PATIENT

DRUGS (4)
  1. TOCILIZUMAB [Suspect]
     Active Substance: TOCILIZUMAB
     Indication: COVID-19
     Dosage: 400 MG/DAY FOR 2 DAYS
     Route: 042
  2. TOCILIZUMAB [Suspect]
     Active Substance: TOCILIZUMAB
     Indication: Inflammation
  3. METHYLPREDNISOLONE [Suspect]
     Active Substance: METHYLPREDNISOLONE
     Indication: COVID-19
     Dosage: FOR 3 DAYS
     Route: 065
  4. METHYLPREDNISOLONE [Suspect]
     Active Substance: METHYLPREDNISOLONE
     Indication: Inflammation

REACTIONS (5)
  - Infection [Fatal]
  - Arrhythmia [Fatal]
  - Acute kidney injury [Unknown]
  - Gastrointestinal haemorrhage [Unknown]
  - Off label use [Unknown]
